FAERS Safety Report 5315129-3 (Version None)
Quarter: 2007Q2

REPORT INFORMATION
  Report Type: 
  Country: None (occurrence: None)
  Receive Date: 20070427
  Receipt Date: 20070416
  Transmission Date: 20071010
  Serious: Yes (Hospitalization)
  Sender: FDA-Public Use
  Company Number: B0467336A

PATIENT
  Age: 37 Year
  Sex: Male

DRUGS (13)
  1. PAROXETINE HCL [Suspect]
  2. IBUPROFEN [Suspect]
  3. METHADONE HCL [Suspect]
  4. OXAZEPAM [Suspect]
  5. COCAINE (FORMULATION UNKNOWN) (COCAINE) [Suspect]
  6. DOXEPIN HCL [Suspect]
  7. CITALOPRAM (FORMULATION UNKNOWN) (CITALOPRAM) [Suspect]
  8. LIGNOCAINE  HYDROCHLORIDE (FORMULATION UNKNOWN) (LIGNOCAINE  HYDROCHLO [Suspect]
  9. TILIDINE HYDROCHLORIDE (FORMULATION UNKNOWN) ( TILIDINE HYDROCHLORIDE [Suspect]
  10. NALOXONE [Suspect]
  11. BUPRENORPHINE (FORMULATION UNKNOWN) ( BUPRENORPHINE) [Suspect]
  12. FLUNITRAZEPAM  (FORMULATION UNKNOWN) (FLUNITRAZEPAM) [Suspect]
  13. TRIMIPRAMINE MALEATE [Suspect]

REACTIONS (3)
  - COMA [None]
  - DRUG TOXICITY [None]
  - TACHYCARDIA [None]
